FAERS Safety Report 8408259-0 (Version None)
Quarter: 2012Q2

REPORT INFORMATION
  Report Type: 
  Country: None (occurrence: None)
  Receive Date: 20120604
  Receipt Date: 20120525
  Transmission Date: 20120825
  Serious: Yes (Hospitalization)
  Sender: FDA-Public Use
  Company Number: US-ABBOTT-12P-163-0933473-00

PATIENT
  Sex: Female
  Weight: 52.21 kg

DRUGS (3)
  1. HUMIRA [Suspect]
     Indication: CROHN'S DISEASE
     Dates: start: 20120201, end: 20120503
  2. HUMIRA [Suspect]
     Dates: start: 20120504
  3. PREDNISONE [Concomitant]
     Indication: PRODUCT USED FOR UNKNOWN INDICATION

REACTIONS (6)
  - NAUSEA [None]
  - SMALL INTESTINAL OBSTRUCTION [None]
  - INCORRECT DOSE ADMINISTERED [None]
  - CROHN'S DISEASE [None]
  - ABDOMINAL PAIN [None]
  - DIARRHOEA [None]
